FAERS Safety Report 10802387 (Version 1)
Quarter: 2015Q1

REPORT INFORMATION
  Report Type: Spontaneous
  Country: GR (occurrence: GR)
  Receive Date: 20150217
  Receipt Date: 20150217
  Transmission Date: 20150721
  Serious: Yes (Other)
  Sender: FDA-Public Use
  Company Number: GR-PFIZER INC-2015057926

PATIENT
  Sex: Female

DRUGS (2)
  1. LYRICA [Suspect]
     Active Substance: PREGABALIN
     Dosage: 25 MG, UNK
  2. LYRICA [Suspect]
     Active Substance: PREGABALIN
     Dosage: 75 MG, UNK

REACTIONS (6)
  - Autoimmune disorder [Unknown]
  - Arthralgia [Unknown]
  - Muscular weakness [Unknown]
  - Drug ineffective [Unknown]
  - Asthenia [Unknown]
  - Gait disturbance [Unknown]
